FAERS Safety Report 8879525 (Version 1)
Quarter: 2012Q4

REPORT INFORMATION
  Report Type: 
  Country: ES (occurrence: ES)
  Receive Date: 20121101
  Receipt Date: 20121101
  Transmission Date: 20130627
  Serious: Yes (Other)
  Sender: FDA-Public Use
  Company Number: ES-MPIJNJ-2012-07481

PATIENT

DRUGS (3)
  1. VELCADE [Suspect]
     Indication: MULTIPLE MYELOMA
     Dosage: 1.3 mg/m2, UNK
     Route: 065
  2. MELPHALAN [Concomitant]
     Dosage: 9 mg/m2, UNK
  3. PREDNISONE [Concomitant]
     Dosage: 60 mg/m2, UNK

REACTIONS (1)
  - Pain [Unknown]
